FAERS Safety Report 8648475 (Version 3)
Quarter: 2012Q4

REPORT INFORMATION
  Report Type: Report from Study
  Country: US (occurrence: US)
  Receive Date: 20120703
  Receipt Date: 20120918
  Transmission Date: 20130627
  Serious: Yes (Hospitalization, Other)
  Sender: FDA-Public Use
  Company Number: US-TEVA-346078USA

PATIENT
  Age: 56 Year
  Sex: Male

DRUGS (16)
  1. TREANDA [Suspect]
     Indication: MULTIPLE MYELOMA
     Dosage: days 1-2
     Route: 042
     Dates: start: 20110714, end: 20111202
  2. TREANDA [Suspect]
     Dosage: days 1-2
     Route: 042
     Dates: start: 20110908, end: 20111202
  3. LENALIDOMIDE [Suspect]
     Dates: start: 20110714, end: 20120613
  4. DEXAMETHASONE [Suspect]
     Dates: start: 20110714, end: 20120613
  5. WARFARIN [Concomitant]
     Dates: start: 20110620
  6. MORNIFLUMATE [Concomitant]
     Dates: start: 20071017
  7. ESCITALOPRAM OXALATE [Concomitant]
     Dates: start: 20071017
  8. TESTOSTERONE [Concomitant]
     Dates: start: 20110620
  9. EPOETIN ALFA [Concomitant]
     Dates: start: 20110620
  10. VICODIN [Concomitant]
     Dates: start: 20110620
  11. IBUPROFEN [Concomitant]
     Dates: start: 20110620
  12. BACTRIM [Concomitant]
     Dates: start: 20110714
  13. OMEPRAZOLE [Concomitant]
     Dates: start: 20110714
  14. FLUCONAZOLE [Concomitant]
     Dates: start: 20110811
  15. ZOLPIDEM TARTRATE [Concomitant]
     Dates: start: 20110908
  16. BIO D EMULSION [Concomitant]
     Dates: start: 20110630

REACTIONS (2)
  - Pneumonia [Recovered/Resolved]
  - Neutropenia [Recovered/Resolved]
